FAERS Safety Report 8112225-2 (Version None)
Quarter: 2012Q1

REPORT INFORMATION
  Report Type: 
  Country: None (occurrence: None)
  Receive Date: 20120203
  Receipt Date: 20120130
  Transmission Date: 20120608
  Serious: No
  Sender: FDA-Public Use
  Company Number: US-PFIZER INC-2012008098

PATIENT
  Sex: Female

DRUGS (3)
  1. PROMETHAZINE [Concomitant]
     Dosage: 25 MG, AS NEEDED
  2. AZITHROMYCIN [Suspect]
     Indication: CHLAMYDIAL INFECTION
     Dosage: 1000 MG, ONCE
     Route: 048
     Dates: start: 20120110, end: 20120110
  3. AMBIEN [Concomitant]
     Dosage: UNK

REACTIONS (1)
  - VOMITING [None]
